FAERS Safety Report 16279379 (Version 2)
Quarter: 2019Q2

REPORT INFORMATION
  Report Type: Report from Study
  Country: JP (occurrence: JP)
  Receive Date: 20190507
  Receipt Date: 20190616
  Transmission Date: 20190711
  Serious: Yes (Hospitalization)
  Sender: FDA-Public Use
  Company Number: JP-CELLTRION INC.-2018JP021235

PATIENT

DRUGS (9)
  1. INFLIXIMAB BS FOR I.V. INFUSION100 MG [NK] [Suspect]
     Active Substance: INFLIXIMAB
     Indication: RHEUMATOID ARTHRITIS
     Dosage: 200 MG/BODY/DAY
     Route: 042
     Dates: start: 20180207, end: 20180207
  2. INFLIXIMAB BS FOR I.V. INFUSION100 MG [NK] [Suspect]
     Active Substance: INFLIXIMAB
     Dosage: 200 MG/BODY/DAY
     Route: 042
     Dates: start: 20180607, end: 20180607
  3. RHEUMATREX [Concomitant]
     Active Substance: METHOTREXATE SODIUM
     Indication: RHEUMATOID ARTHRITIS
     Dosage: 10 MG, 1/WEEK
  4. RECALBON [Concomitant]
     Active Substance: MINODRONIC ACID
     Indication: OSTEOPOROSIS
     Dosage: 50 MG, DAILY
     Dates: start: 20160616
  5. PREDNISOLONE. [Concomitant]
     Active Substance: PREDNISOLONE
     Dosage: 5 MG, DAILY
     Dates: start: 20110509
  6. INFLIXIMAB BS FOR I.V. INFUSION100 MG [NK] [Suspect]
     Active Substance: INFLIXIMAB
     Dosage: 200 MG/BODY/DAY
     Route: 042
     Dates: start: 20181020, end: 20181020
  7. INFLIXIMAB BS FOR I.V. INFUSION100 MG [NK] [Suspect]
     Active Substance: INFLIXIMAB
     Dosage: 200 MG/BODY/DAY
     Route: 042
     Dates: start: 20190119, end: 20190119
  8. INFLIXIMAB BS FOR I.V. INFUSION100 MG [NK] [Suspect]
     Active Substance: INFLIXIMAB
     Dosage: 200 MG/BODY/DAY
     Route: 042
     Dates: start: 20190423, end: 20190423
  9. MUCOSTA [Concomitant]
     Active Substance: REBAMIPIDE
     Indication: CHRONIC GASTRITIS
     Dosage: 100 MG, DAILY
     Dates: start: 20140218

REACTIONS (1)
  - Cholelithiasis [Recovering/Resolving]

NARRATIVE: CASE EVENT DATE: 20180420
